FAERS Safety Report 7227118-2 (Version None)
Quarter: 2011Q1

REPORT INFORMATION
  Report Type: 
  Country: None (occurrence: None)
  Receive Date: 20110114
  Receipt Date: 20110107
  Transmission Date: 20110831
  Serious: Yes (Hospitalization, Other)
  Sender: FDA-Public Use
  Company Number: FR-PFIZER INC-2011008919

PATIENT
  Age: 24 Year
  Sex: Male

DRUGS (8)
  1. KEPPRA [Suspect]
     Indication: EPILEPSY
     Dosage: 500 MG, 6X/DAY
     Route: 048
  2. URBANYL [Suspect]
     Indication: EPILEPSY
     Dosage: 10 MG, 6X/DAY
     Route: 048
  3. ATARAX [Suspect]
     Indication: ANXIETY
     Dosage: 25 MG, 2X/DAY
     Route: 048
  4. TRIMEPRAZINE TARTRATE [Suspect]
     Indication: INSOMNIA
     Dosage: 15 ORAL DROPS/DAY
     Route: 048
  5. ABILIFY [Suspect]
     Dosage: 10 MG, 2X/DAY
     Route: 048
     Dates: start: 20100407
  6. TEGRETOL [Suspect]
     Indication: EPILEPSY
     Dosage: 200 MG, 3X/DAY
     Route: 048
  7. TRANXENE [Suspect]
     Indication: ANXIETY
     Dosage: 20 MG, 3X/DAY
     Route: 048
  8. LAMOTRIGINE [Suspect]
     Indication: EPILEPSY
     Dosage: 100 MG, 2X/DAY
     Route: 048

REACTIONS (3)
  - ABNORMAL BEHAVIOUR [None]
  - BRADYCARDIA [None]
  - ELECTROCARDIOGRAM QT PROLONGED [None]
